FAERS Safety Report 8879030 (Version 1)
Quarter: 2012Q4

REPORT INFORMATION
  Report Type: Spontaneous
  Country: US (occurrence: None)
  Receive Date: 20121031
  Receipt Date: 20121031
  Transmission Date: 20130627
  Serious: Yes (Life-Threatening, Other)
  Sender: FDA-Public Use
  Company Number: None

PATIENT
  Age: 19 Year
  Sex: Female
  Weight: 68.04 kg

DRUGS (1)
  1. NEXPLANON [Suspect]
     Indication: BIRTH CONTROL
     Dates: start: 20120904, end: 20120910

REACTIONS (12)
  - Hypersensitivity [None]
  - Injection site pain [None]
  - Injection site bruising [None]
  - Pyrexia [None]
  - Abdominal distension [None]
  - Back pain [None]
  - Headache [None]
  - Nausea [None]
  - Vomiting [None]
  - Lethargy [None]
  - Influenza like illness [None]
  - Chromaturia [None]
